FAERS Safety Report 16714090 (Version 1)
Quarter: 2019Q3

REPORT INFORMATION
  Report Type: Report from Study
  Country: US (occurrence: US)
  Receive Date: 20190819
  Receipt Date: 20190819
  Transmission Date: 20191004
  Serious: No
  Sender: FDA-Public Use
  Company Number: PHEH2019US033827

PATIENT
  Age: 67 Year
  Sex: Female

DRUGS (1)
  1. COSENTYX [Suspect]
     Active Substance: SECUKINUMAB
     Indication: PSORIASIS
     Dosage: 300 MG, QMO
     Route: 058
     Dates: start: 20190522

REACTIONS (8)
  - Fatigue [Not Recovered/Not Resolved]
  - Limb injury [Unknown]
  - Concomitant disease aggravated [Unknown]
  - Bursitis [Unknown]
  - Decreased appetite [Not Recovered/Not Resolved]
  - Somnolence [Unknown]
  - Fall [Not Recovered/Not Resolved]
  - Head injury [Unknown]

NARRATIVE: CASE EVENT DATE: 20190713
